FAERS Safety Report 22166788 (Version 2)
Quarter: 2023Q2

REPORT INFORMATION
  Report Type: Spontaneous
  Country: US (occurrence: US)
  Receive Date: 20230403
  Receipt Date: 20230410
  Transmission Date: 20230722
  Serious: Yes (Hospitalization, Other)
  Sender: FDA-Public Use
  Company Number: US-PFIZER INC-202300136921

PATIENT
  Age: 72 Year
  Sex: Female

DRUGS (1)
  1. NALBUPHINE HYDROCHLORIDE [Suspect]
     Active Substance: NALBUPHINE HYDROCHLORIDE
     Indication: Pain
     Dosage: 20 MG/ML, AS NEEDED (200MG/10ML VIAL AS NEEDED)
     Dates: start: 1983

REACTIONS (3)
  - Cerebrovascular accident [Unknown]
  - Brain operation [Unknown]
  - Hypokinesia [Unknown]

NARRATIVE: CASE EVENT DATE: 20221118
